FAERS Safety Report 8648562 (Version 2)
Quarter: 2013Q3

REPORT INFORMATION
  Report Type: Spontaneous
  Country: JP (occurrence: JP)
  Receive Date: 20120703
  Receipt Date: 20130807
  Transmission Date: 20140515
  Serious: Yes (Life-Threatening)
  Sender: FDA-Public Use
  Company Number: JP-GLAXOSMITHKLINE-B0782480A

PATIENT
  Age: 54 Year
  Sex: Female

DRUGS (6)
  1. LAMICTAL [Suspect]
     Indication: BIPOLAR I DISORDER
     Dosage: 25MG PER DAY
     Route: 048
     Dates: start: 20111209
  2. LENDEM [Concomitant]
     Route: 048
  3. MEDIPEACE [Concomitant]
     Route: 048
  4. PURSENNID [Concomitant]
     Route: 048
  5. LIMAS [Concomitant]
     Route: 048
  6. SELBEX [Concomitant]
     Route: 048

REACTIONS (17)
  - Stevens-Johnson syndrome [Recovered/Resolved with Sequelae]
  - Toxic epidermal necrolysis [Unknown]
  - Hyperthermia [Unknown]
  - Rash [Recovering/Resolving]
  - Decreased appetite [Unknown]
  - Urinary incontinence [Unknown]
  - Tremor [Unknown]
  - Asthenia [Unknown]
  - Dizziness [Unknown]
  - Headache [Unknown]
  - Hypotension [Unknown]
  - Tachycardia [Unknown]
  - Ataxia [Unknown]
  - Dyslalia [Unknown]
  - Nervous system disorder [Unknown]
  - Lymphocyte stimulation test positive [Unknown]
  - Drug eruption [Unknown]
